FAERS Safety Report 9188346 (Version 2)
Quarter: 2012Q4

REPORT INFORMATION
  Report Type: 
  Country: DE (occurrence: JP)
  Receive Date: 20121204
  Receipt Date: 20121218
  Transmission Date: 20130627
  Serious: Yes (Death, Hospitalization)
  Sender: FDA-Public Use
  Company Number: JP-BRACCO-006604

PATIENT
  Age: 60 None
  Sex: Male

DRUGS (6)
  1. LIVALO [Concomitant]
     Dates: start: 20100427, end: 20121125
  2. OLMETEC [Concomitant]
     Dates: start: 200809, end: 20121125
  3. AMLODIPINE [Concomitant]
     Dates: start: 200809, end: 20121125
  4. ARTIST [Concomitant]
     Dates: start: 200809, end: 20121125
  5. IOPAMIRON [Suspect]
     Indication: COMPUTERISED TOMOGRAM
     Dosage: 3.3 mL/s for 30 s
     Route: 042
     Dates: start: 20121124, end: 20121124
  6. IOPAMIRON [Suspect]
     Indication: AORTIC DISSECTION
     Dosage: 3.3 mL/s for 30 s
     Route: 042
     Dates: start: 20121124, end: 20121124

REACTIONS (1)
  - Anaphylactic shock [Fatal]
